FAERS Safety Report 24689908 (Version 1)
Quarter: 2024Q4

REPORT INFORMATION
  Report Type: Spontaneous
  Country: US (occurrence: None)
  Receive Date: 20241202
  Receipt Date: 20241202
  Transmission Date: 20250115
  Serious: Yes (Hospitalization)
  Sender: Public
  Company Number: None

PATIENT
  Age: 78 Year
  Sex: Female

DRUGS (1)
  1. EPOGEN [Suspect]
     Active Substance: ERYTHROPOIETIN
     Indication: Anaemia
     Dosage: OTHER STRENGTH : 20,000U/M ;?FREQUENCY : MONTHLY;?
     Route: 058
     Dates: start: 202403

REACTIONS (2)
  - Full blood count decreased [None]
  - Clostridium difficile infection [None]

NARRATIVE: CASE EVENT DATE: 20241003
